FAERS Safety Report 16828722 (Version 1)
Quarter: 2019Q3

REPORT INFORMATION
  Report Type: Spontaneous
  Country: GB (occurrence: GB)
  Receive Date: 20190919
  Receipt Date: 20190919
  Transmission Date: 20191005
  Serious: Yes (Other)
  Sender: FDA-Public Use
  Company Number: GB-MYLANLABS-2019M1086440

PATIENT
  Age: 33 Year
  Sex: Female
  Weight: 85 kg

DRUGS (7)
  1. TOLTERODINE TARTRATE. [Concomitant]
     Active Substance: TOLTERODINE TARTRATE
     Dosage: 2 DOSAGE FORM, QD
     Dates: start: 20190207, end: 20190307
  2. LOPERAMIDE [Concomitant]
     Active Substance: LOPERAMIDE
     Dosage: 5 MILLILITER(SPOON AS DIRECTED)
     Dates: start: 20190207, end: 20190307
  3. DESOGESTREL [Concomitant]
     Active Substance: DESOGESTREL
     Dosage: 1 DOSAGE FORM, QD
     Dates: start: 20140709
  4. DOXYCYCLINE. [Suspect]
     Active Substance: DOXYCYCLINE
     Indication: PRODUCT USED FOR UNKNOWN INDICATION
     Dosage: 100 MILLIGRAM
     Dates: start: 20190404
  5. CITALOPRAM [Concomitant]
     Active Substance: CITALOPRAM HYDROBROMIDE
     Indication: ANXIETY
     Dosage: 1 DOSAGE FORM, QD(IN THE MORNING)
     Dates: start: 20190207, end: 20190307
  6. OMEPRAZOLE. [Concomitant]
     Active Substance: OMEPRAZOLE
     Indication: DYSPEPSIA
     Dosage: 1 DOSAGE FORM, QD
     Dates: start: 20180306
  7. BENZYDAMINE HYDROCHLORIDE [Concomitant]
     Active Substance: BENZYDAMINE HYDROCHLORIDE
     Dosage: 15 MILLILITER, Q3H
     Dates: start: 20190404

REACTIONS (3)
  - Rash [Unknown]
  - Swelling face [Recovered/Resolved]
  - Lip swelling [Unknown]

NARRATIVE: CASE EVENT DATE: 20190404
